FAERS Safety Report 22645177 (Version 1)
Quarter: 2023Q2

REPORT INFORMATION
  Report Type: Spontaneous
  Country: US (occurrence: None)
  Receive Date: 20230626
  Receipt Date: 20230626
  Transmission Date: 20230722
  Serious: Yes (Disabling, Other)
  Sender: FDA-Public Use
  Company Number: None

PATIENT
  Age: 25 Year
  Sex: Male
  Weight: 76.5 kg

DRUGS (1)
  1. MELOXICAM [Suspect]
     Active Substance: MELOXICAM

REACTIONS (2)
  - Hypersensitivity [None]
  - Gastric ulcer [None]

NARRATIVE: CASE EVENT DATE: 20230625
